FAERS Safety Report 4607325-5 (Version None)
Quarter: 2005Q1

REPORT INFORMATION
  Report Type: 
  Country: None (occurrence: None)
  Receive Date: 20050314
  Receipt Date: 20020806
  Transmission Date: 20050727
  Serious: Yes (Hospitalization)
  Sender: FDA-Public Use
  Company Number: US-AMGEN-US017239

PATIENT
  Sex: Female

DRUGS (10)
  1. KINERET [Suspect]
     Indication: RHEUMATOID ARTHRITIS
     Route: 058
     Dates: start: 20020717, end: 20020801
  2. PREDNISONE [Suspect]
     Route: 048
  3. VIOXX [Suspect]
  4. PLAQUENIL [Suspect]
  5. TAMOXIFEN CITRATE [Concomitant]
  6. NEXIUM [Concomitant]
  7. FOSAMAX [Concomitant]
  8. ZOLOFT [Concomitant]
  9. FENTANYL [Concomitant]
     Route: 061
  10. ATIVAN [Concomitant]

REACTIONS (8)
  - BRONCHIECTASIS [None]
  - DEHYDRATION [None]
  - ESCHERICHIA INFECTION [None]
  - ESCHERICHIA URINARY TRACT INFECTION [None]
  - HEPATIC CYST [None]
  - LUNG NEOPLASM [None]
  - PULMONARY FIBROSIS [None]
  - PYELONEPHRITIS [None]
